FAERS Safety Report 21358653 (Version 1)
Quarter: 2022Q3

REPORT INFORMATION
  Report Type: Spontaneous
  Country: US (occurrence: None)
  Receive Date: 20220920
  Receipt Date: 20220920
  Transmission Date: 20221027
  Serious: No
  Sender: FDA-Public Use
  Company Number: None

PATIENT
  Sex: Female

DRUGS (1)
  1. OTEZLA [Suspect]
     Active Substance: APREMILAST
     Indication: Psoriasis
     Dosage: DOSE/FREQUENCY: DAY 1: 10MG IN AM,  DAY 2: 10MG AM AND PM,  DAY 3: 10MG AM AND 20MG PM,  DAY 4: 20G
     Route: 048
     Dates: start: 202208

REACTIONS (1)
  - Therapy non-responder [None]
